FAERS Safety Report 8223380-8 (Version None)
Quarter: 2012Q1

REPORT INFORMATION
  Report Type: 
  Country: None (occurrence: None)
  Receive Date: 20120321
  Receipt Date: 20120314
  Transmission Date: 20120608
  Serious: Yes (Hospitalization, Other)
  Sender: FDA-Public Use
  Company Number: US-BAYER-201012533NA

PATIENT
  Age: 60 Year
  Sex: Female
  Weight: 70.295 kg

DRUGS (32)
  1. NEURONTIN [Concomitant]
     Indication: NEUROPATHY PERIPHERAL
     Dosage: UNK
     Dates: start: 20030101
  2. VICODIN [Concomitant]
  3. PRILOSEC [Concomitant]
     Indication: GASTROOESOPHAGEAL REFLUX DISEASE
     Dosage: UNK
     Dates: start: 20050609
  4. POTASSIUM CHLORIDE [Concomitant]
  5. ATROVENT [Concomitant]
  6. XOPENEX [Concomitant]
  7. IBUPROFEN [Concomitant]
     Dosage: UNK
     Dates: start: 20040101
  8. METOPROLOL SUCCINATE [Concomitant]
     Indication: HYPERTENSION
     Dosage: UNK
     Dates: start: 20040101
  9. CEPHALEXIN [Concomitant]
     Dosage: UNK
     Dates: start: 20030618
  10. OMEPRAZOLE [Concomitant]
     Indication: GASTROOESOPHAGEAL REFLUX DISEASE
     Dosage: UNK
     Dates: start: 20060101
  11. FISH OIL [Concomitant]
  12. MEDROXYPROGESTERONE [Concomitant]
  13. AMBIEN [Concomitant]
  14. SYNTHROID [Concomitant]
     Indication: HYPOTHYROIDISM
     Dosage: UNK
     Dates: start: 20050101
  15. NIASPAN [Concomitant]
     Indication: BLOOD CHOLESTEROL INCREASED
     Dosage: UNK
     Dates: start: 20030411
  16. NEUTRA-PHOS [Concomitant]
  17. LORAZEPAM [Concomitant]
     Dosage: UNK
     Dates: start: 20060323
  18. ALPRAZOLAM [Concomitant]
     Indication: ANXIETY
     Dosage: UNK
     Dates: start: 20030723
  19. GABAPENTIN [Concomitant]
     Indication: NEUROPATHY PERIPHERAL
     Dosage: UNK
     Dates: start: 20040421
  20. TRIAMTERENE [Concomitant]
     Dosage: UNK
     Dates: start: 20060808, end: 20070808
  21. AMITRIPTYLINE HCL [Concomitant]
     Indication: ANTIDEPRESSANT THERAPY
     Dosage: UNK
     Dates: start: 20050609
  22. LOVASTATIN [Concomitant]
     Indication: BLOOD CHOLESTEROL INCREASED
  23. NEXIUM [Concomitant]
  24. MAGNESIUM OXIDE [Concomitant]
  25. YAZ [Suspect]
     Indication: VAGINAL HAEMORRHAGE
     Dosage: 1 DF (DAILY DOSE), QD, ORAL
     Route: 048
     Dates: start: 20080415, end: 20080508
  26. BACLOFEN [Concomitant]
     Indication: MUSCLE SPASMS
     Dosage: UNK
     Dates: start: 20060128
  27. LORAZEPAM [Concomitant]
     Indication: ANXIETY
     Dosage: UNK
     Dates: start: 20050817
  28. CIPROFLOXACIN [Concomitant]
     Dosage: UNK
     Dates: start: 20050224
  29. ASPIRIN [Concomitant]
  30. LISINOPRIL [Concomitant]
     Dosage: UNK
     Dates: start: 20031110
  31. AMPICILLIN [Concomitant]
     Dosage: UNK
     Dates: start: 20060725
  32. ASCORBIC ACID [Concomitant]

REACTIONS (7)
  - MUSCULOSKELETAL DISORDER [None]
  - INJURY [None]
  - DEEP VEIN THROMBOSIS [None]
  - PULMONARY EMBOLISM [None]
  - CEREBROVASCULAR ACCIDENT [None]
  - CARDIAC ARREST [None]
  - RESPIRATORY FAILURE [None]
